FAERS Safety Report 24367460 (Version 2)
Quarter: 2024Q4

REPORT INFORMATION
  Report Type: Spontaneous
  Country: US (occurrence: US)
  Receive Date: 20240926
  Receipt Date: 20241022
  Transmission Date: 20250115
  Serious: No
  Sender: AMGEN
  Company Number: US-AMGEN-USASP2024190397

PATIENT
  Age: 70 Year
  Sex: Female

DRUGS (1)
  1. TEPEZZA [Suspect]
     Active Substance: TEPROTUMUMAB-TRBW
     Indication: Endocrine ophthalmopathy
     Dosage: UNK UNK, Q3WK, 1XQ3WK, FOR 8 INFUSIONS
     Route: 042
     Dates: start: 20240717

REACTIONS (2)
  - Muscle spasms [Unknown]
  - Taste disorder [Unknown]
